FAERS Safety Report 9199780 (Version 1)
Quarter: 2013Q1

REPORT INFORMATION
  Report Type: Spontaneous
  Country: FR (occurrence: FR)
  Receive Date: 20130328
  Receipt Date: 20130328
  Transmission Date: 20140127
  Serious: Yes (Hospitalization, Other)
  Sender: FDA-Public Use
  Company Number: FR-ACTELION-A-CH2013-81043

PATIENT
  Age: 47 Year
  Sex: Female

DRUGS (5)
  1. TRACLEER [Suspect]
     Indication: PULMONARY ARTERIAL HYPERTENSION
     Dosage: 125 MG, BID
     Route: 048
  2. EPOPROSTENOL [Suspect]
     Dosage: 13 NG/KG, PER MIN
     Route: 041
     Dates: start: 20121126
  3. REVATIO [Suspect]
     Dosage: 20 MG, TID
  4. DOLIPRANE [Concomitant]
  5. PRIMPERAN [Concomitant]

REACTIONS (3)
  - Thrombocytopenia [Not Recovered/Not Resolved]
  - Platelet transfusion [Unknown]
  - Metrorrhagia [Not Recovered/Not Resolved]
